FAERS Safety Report 19552302 (Version 1)
Quarter: 2021Q3

REPORT INFORMATION
  Report Type: Spontaneous
  Country: IR (occurrence: IR)
  Receive Date: 20210715
  Receipt Date: 20210715
  Transmission Date: 20211014
  Serious: Yes (Hospitalization, Other)
  Sender: FDA-Public Use
  Company Number: IR-SCIEGENPHARMA-2020SCILIT00448

PATIENT
  Age: 17 Year
  Sex: Female

DRUGS (10)
  1. MIDAZOLAM. [Interacting]
     Active Substance: MIDAZOLAM
     Indication: NAUSEA
  2. ONDANSETRON [Interacting]
     Active Substance: ONDANSETRON
     Indication: AGITATION
     Route: 065
  3. CYPROHEPTADINE. [Interacting]
     Active Substance: CYPROHEPTADINE
     Dosage: EVERY 4 H ORALLY
     Route: 048
  4. LAMOTRIGINE TABLETS [Suspect]
     Active Substance: LAMOTRIGINE
     Dosage: ONE?FOURTH OF 50 MG
     Route: 065
  5. CITALOPRAM [Suspect]
     Active Substance: CITALOPRAM HYDROBROMIDE
     Indication: PRODUCT USED FOR UNKNOWN INDICATION
     Route: 048
     Dates: start: 201812
  6. LAMOTRIGINE TABLETS [Suspect]
     Active Substance: LAMOTRIGINE
     Indication: PRODUCT USED FOR UNKNOWN INDICATION
     Dosage: ONE?FOURTH OF 50 MG
     Route: 048
     Dates: start: 201812
  7. CYPROHEPTADINE. [Interacting]
     Active Substance: CYPROHEPTADINE
     Indication: SEROTONIN SYNDROME
     Dosage: EVERY 4HOURS
     Route: 048
  8. ONDANSETRON [Interacting]
     Active Substance: ONDANSETRON
     Indication: NAUSEA
  9. CITALOPRAM [Suspect]
     Active Substance: CITALOPRAM HYDROBROMIDE
     Dosage: HALF OF THE 20 MG
     Route: 065
  10. MIDAZOLAM. [Interacting]
     Active Substance: MIDAZOLAM
     Indication: AGITATION
     Route: 042

REACTIONS (3)
  - Suicide attempt [Unknown]
  - Serotonin syndrome [Recovered/Resolved]
  - Intentional overdose [Unknown]
